FAERS Safety Report 15264388 (Version 1)
Quarter: 2018Q3

REPORT INFORMATION
  Report Type: Spontaneous
  Country: US (occurrence: US)
  Receive Date: 20180722
  Receipt Date: 20180722
  Transmission Date: 20181010
  Serious: Yes (Disabling)
  Sender: FDA-Public Use
  Company Number: None

PATIENT
  Age: 40 Year
  Sex: Male
  Weight: 92.25 kg

DRUGS (1)
  1. CIPROFLOXIN [Suspect]
     Active Substance: CIPROFLOXACIN
     Indication: PROSTATITIS
     Dosage: ?          QUANTITY:1 TABLET(S);?
     Route: 048
     Dates: start: 20180316, end: 20180419

REACTIONS (7)
  - Depression [None]
  - Insomnia [None]
  - Anxiety [None]
  - Headache [None]
  - Weight decreased [None]
  - Suicidal ideation [None]
  - Thinking abnormal [None]

NARRATIVE: CASE EVENT DATE: 20180419
